FAERS Safety Report 5392076-2 (Version None)
Quarter: 2007Q3

REPORT INFORMATION
  Report Type: 
  Country: None (occurrence: None)
  Receive Date: 20070720
  Receipt Date: 20070713
  Transmission Date: 20080115
  Serious: Yes (Hospitalization)
  Sender: FDA-Public Use
  Company Number: HQWYE422330MAY07

PATIENT
  Age: 65 Year
  Sex: Male

DRUGS (4)
  1. INIPOMP [Suspect]
     Indication: PROPHYLAXIS
     Dosage: ^1/DAY 1 DF^
     Route: 048
     Dates: start: 20070504, end: 20070504
  2. HYALURONATE SODIUM [Concomitant]
     Indication: SYNOVIAL DISORDER
     Route: 014
     Dates: start: 20070504, end: 20070504
  3. ALLOPURINOL [Concomitant]
     Dosage: ^DF^
  4. XYLOCAINE [Concomitant]
     Indication: LOCAL ANAESTHESIA
     Dosage: ^DF^
     Dates: start: 20070504, end: 20070504

REACTIONS (3)
  - ANAPHYLACTIC SHOCK [None]
  - HOT FLUSH [None]
  - PARAESTHESIA [None]
